FAERS Safety Report 7010641-3 (Version None)
Quarter: 2010Q3

REPORT INFORMATION
  Report Type: 
  Country: None (occurrence: None)
  Receive Date: 20100923
  Receipt Date: 20100916
  Transmission Date: 20110219
  Serious: Yes (Hospitalization)
  Sender: FDA-Public Use
  Company Number: US-US-EMD SERONO, INC.-7017965

PATIENT
  Sex: Female

DRUGS (2)
  1. REBIF [Suspect]
     Indication: MULTIPLE SCLEROSIS
     Route: 058
     Dates: start: 20100716
  2. UNSPECIFIED MEDICATIONS [Concomitant]

REACTIONS (4)
  - BACK PAIN [None]
  - CHILLS [None]
  - PNEUMONIA STAPHYLOCOCCAL [None]
  - UPPER RESPIRATORY TRACT INFECTION [None]
